FAERS Safety Report 17886907 (Version 1)
Quarter: 2020Q2

REPORT INFORMATION
  Report Type: Report from Study
  Country: None (occurrence: GB)
  Receive Date: 20200612
  Receipt Date: 20200612
  Transmission Date: 20200714
  Serious: Yes (Other)
  Sender: FDA-Public Use
  Company Number: GB-ABBVIE-20K-167-3437905-00

PATIENT
  Age: 25 Year
  Sex: Male

DRUGS (1)
  1. HUMIRA [Suspect]
     Active Substance: ADALIMUMAB
     Indication: BEHCET^S SYNDROME
     Route: 058

REACTIONS (10)
  - Fall [Unknown]
  - Contusion [Unknown]
  - Cervical vertebral fracture [Unknown]
  - Lower respiratory tract infection [Unknown]
  - Pyrexia [Unknown]
  - Malaise [Unknown]
  - Head discomfort [Unknown]
  - Loss of consciousness [Unknown]
  - Dyspnoea [Unknown]
  - Head injury [Unknown]

NARRATIVE: CASE EVENT DATE: 2020
